FAERS Safety Report 5835631-5 (Version None)
Quarter: 2008Q3

REPORT INFORMATION
  Report Type: 
  Country: None (occurrence: None)
  Receive Date: 20080730
  Receipt Date: 20070816
  Transmission Date: 20090109
  Serious: Yes (Other)
  Sender: FDA-Public Use
  Company Number: 2007SP016722

PATIENT
  Age: 50 Year
  Sex: Male
  Weight: 88.4514 kg

DRUGS (6)
  1. REBETOL [Suspect]
     Indication: HEPATITIS C
     Dosage: 1000 MG; QD; PO, 800 MG; BID; PO
     Route: 048
     Dates: start: 20060202, end: 20060701
  2. REBETOL [Suspect]
     Indication: HEPATITIS C
     Dosage: 1000 MG; QD; PO, 800 MG; BID; PO
     Route: 048
     Dates: start: 20060701
  3. INFERGEN [Suspect]
     Indication: HEPATITIS C
     Dosage: 15 MCG; QD; SC, 15 MCG; QOD; SC
     Route: 058
     Dates: start: 20060202, end: 20060801
  4. INFERGEN [Suspect]
     Indication: HEPATITIS C
     Dosage: 15 MCG; QD; SC, 15 MCG; QOD; SC
     Route: 058
     Dates: start: 20060801, end: 20061201
  5. EFFEXOR [Concomitant]
  6. REMERON [Concomitant]

REACTIONS (7)
  - ANAEMIA [None]
  - DYSPNOEA [None]
  - FATIGUE [None]
  - HYPERHIDROSIS [None]
  - MUSCULOSKELETAL PAIN [None]
  - PAIN [None]
  - WHITE BLOOD CELL COUNT DECREASED [None]
